FAERS Safety Report 22003127 (Version 2)
Quarter: 2023Q1

REPORT INFORMATION
  Report Type: Spontaneous
  Country: GB (occurrence: GB)
  Receive Date: 20230217
  Receipt Date: 20230228
  Transmission Date: 20230418
  Serious: Yes (Other)
  Sender: FDA-Public Use
  Company Number: GB-AstraZeneca-2023A037897

PATIENT

DRUGS (2)
  1. ZOLADEX [Suspect]
     Active Substance: GOSERELIN ACETATE
     Indication: Product used for unknown indication
     Dosage: UNK
     Route: 058
  2. ZOLADEX [Suspect]
     Active Substance: GOSERELIN ACETATE
     Indication: Product used for unknown indication
     Dosage: UNK
     Route: 065

REACTIONS (1)
  - Malignant neoplasm progression [Unknown]
